FAERS Safety Report 16259738 (Version 2)
Quarter: 2019Q2

REPORT INFORMATION
  Report Type: Report from Study
  Country: BR (occurrence: BR)
  Receive Date: 20190501
  Receipt Date: 20190503
  Transmission Date: 20190711
  Serious: Yes (Hospitalization)
  Sender: FDA-Public Use
  Company Number: BR-ROCHE-2308978

PATIENT
  Age: 64 Year
  Sex: Male
  Weight: 109 kg

DRUGS (9)
  1. CARVEDILOL. [Concomitant]
     Active Substance: CARVEDILOL
     Indication: CONGESTIVE CARDIOMYOPATHY
     Route: 065
     Dates: start: 2008
  2. FUROSEMIDE. [Concomitant]
     Active Substance: FUROSEMIDE
     Indication: CONGESTIVE CARDIOMYOPATHY
     Route: 065
     Dates: start: 2008
  3. TRAMADOL. [Concomitant]
     Active Substance: TRAMADOL
     Indication: TUMOUR PAIN
     Route: 048
     Dates: start: 20180830
  4. ATEZOLIZUMAB. [Suspect]
     Active Substance: ATEZOLIZUMAB
     Indication: MALIGNANT MELANOMA
     Dosage: ON DAY 1 OF EACH 21-DAY CYCLE?MOST RECENT DOSE OF ATEZOLIZUMAB (1200 MG) PRIOR TO EVENT ONSET: 11/MA
     Route: 042
     Dates: start: 20180716
  5. ENALAPRIL [Concomitant]
     Active Substance: ENALAPRIL
     Indication: CONGESTIVE CARDIOMYOPATHY
     Route: 065
     Dates: start: 2008
  6. EDOXABAN [Concomitant]
     Active Substance: EDOXABAN TOSYLATE
     Indication: CONGESTIVE CARDIOMYOPATHY
     Route: 065
     Dates: start: 20190123
  7. DIPYRONE [Concomitant]
     Active Substance: DIPYRONE
     Indication: TUMOUR PAIN
     Route: 065
     Dates: start: 20180716
  8. ESPIRONOLACTONA [Concomitant]
     Active Substance: SPIRONOLACTONE
     Indication: CONGESTIVE CARDIOMYOPATHY
     Route: 065
     Dates: start: 2008
  9. METFORMIN [Concomitant]
     Active Substance: METFORMIN HYDROCHLORIDE
     Indication: DIABETES MELLITUS
     Route: 065
     Dates: start: 2015

REACTIONS (1)
  - Colon neoplasm [Not Recovered/Not Resolved]

NARRATIVE: CASE EVENT DATE: 20190415
